FAERS Safety Report 13627383 (Version 2)
Quarter: 2018Q4

REPORT INFORMATION
  Report Type: Report from Study
  Country: GB (occurrence: GB)
  Receive Date: 20170607
  Receipt Date: 20181016
  Transmission Date: 20190204
  Serious: Yes (Death, Other)
  Sender: FDA-Public Use
  Company Number: GB-AMGEN-GBRSL2017085472

PATIENT
  Age: 91 Year
  Sex: Female
  Weight: 50 kg

DRUGS (1)
  1. PROLIA [Suspect]
     Active Substance: DENOSUMAB
     Indication: OSTEOPOROSIS
     Dosage: 60 MG, Q6MO
     Route: 058
     Dates: start: 20120110, end: 20160115

REACTIONS (5)
  - Asthenia [Unknown]
  - Dementia [Unknown]
  - Mobility decreased [Fatal]
  - Incontinence [Unknown]
  - Cognitive disorder [Unknown]
